FAERS Safety Report 5351767-X (Version None)
Quarter: 2007Q2

REPORT INFORMATION
  Report Type: 
  Country: None (occurrence: None)
  Receive Date: 20070521
  Receipt Date: 20070227
  Transmission Date: 20071010
  Serious: No
  Sender: FDA-Public Use
  Company Number: WAES 0702USA04685

PATIENT
  Age: 42 Year
  Sex: Female

DRUGS (3)
  1. JANUVIA [Suspect]
     Indication: DIABETES MELLITUS
     Dosage: 100 MG/DAILY/PO
     Route: 048
     Dates: start: 20070226, end: 20070227
  2. BYETTA [Concomitant]
  3. IBUPROFEN [Concomitant]

REACTIONS (3)
  - HEADACHE [None]
  - PRURITUS GENERALISED [None]
  - RASH [None]
